FAERS Safety Report 15061953 (Version 1)
Quarter: 2018Q2

REPORT INFORMATION
  Report Type: Spontaneous
  Country: US (occurrence: US)
  Receive Date: 20180625
  Receipt Date: 20180625
  Transmission Date: 20180711
  Serious: No
  Sender: FDA-Public Use
  Company Number: US-BIOGEN-2018BI00599650

PATIENT
  Sex: Female

DRUGS (1)
  1. TECFIDERA [Suspect]
     Active Substance: DIMETHYL FUMARATE
     Indication: MULTIPLE SCLEROSIS
     Route: 048
     Dates: start: 20180123, end: 20180507

REACTIONS (5)
  - Balance disorder [Unknown]
  - Paraesthesia [Unknown]
  - Head titubation [Unknown]
  - Dysphagia [Unknown]
  - Anxiety [Unknown]
